FAERS Safety Report 12827509 (Version 2)
Quarter: 2017Q2

REPORT INFORMATION
  Report Type: Spontaneous
  Country: US (occurrence: US)
  Receive Date: 20161007
  Receipt Date: 20170409
  Transmission Date: 20170830
  Serious: No
  Sender: FDA-Public Use
  Company Number: US-TEVA-692714ACC

PATIENT
  Age: 36 Year
  Sex: Female
  Weight: 64.47 kg

DRUGS (2)
  1. PARAGARD T 380A [Suspect]
     Active Substance: COPPER
     Indication: CONTRACEPTION
     Dates: start: 20160628, end: 20160906
  2. PARAGARD T 380A [Suspect]
     Active Substance: COPPER
     Dates: start: 20170103

REACTIONS (4)
  - Discomfort [Unknown]
  - Device expulsion [Recovered/Resolved]
  - Pain [Recovered/Resolved]
  - Vaginal haemorrhage [Recovered/Resolved]

NARRATIVE: CASE EVENT DATE: 20160821
